FAERS Safety Report 24925904 (Version 1)
Quarter: 2025Q1

REPORT INFORMATION
  Report Type: Spontaneous
  Country: US (occurrence: US)
  Receive Date: 20250205
  Receipt Date: 20250205
  Transmission Date: 20250408
  Serious: No
  Sender: ROCHE
  Company Number: US-ROCHE-10000194514

PATIENT
  Age: 76 Year
  Sex: Female

DRUGS (4)
  1. ESBRIET [Suspect]
     Active Substance: PIRFENIDONE
     Indication: Idiopathic pulmonary fibrosis
     Dosage: TAKE 1 CAPSULE 3 TIMES DAILY X 1 WEEK, THEN TAKE 2 CAPSULE 3 TIMES DAILY X 1 WEEK, TAKE 3 CAPSULE 3
     Route: 048
     Dates: start: 20250125
  2. ALOSETRON [Concomitant]
     Active Substance: ALOSETRON
     Route: 048
  3. GABAPENTIN [Concomitant]
     Active Substance: GABAPENTIN
     Route: 048
  4. GEMTESA [Concomitant]
     Active Substance: VIBEGRON
     Route: 048

REACTIONS (4)
  - Productive cough [Unknown]
  - Nasal congestion [Unknown]
  - Retching [Unknown]
  - Dyspnoea [Unknown]
